FAERS Safety Report 8170900-8 (Version None)
Quarter: 2012Q1

REPORT INFORMATION
  Report Type: 
  Country: None (occurrence: None)
  Receive Date: 20120228
  Receipt Date: 20120216
  Transmission Date: 20120608
  Serious: Yes (Death)
  Sender: FDA-Public Use
  Company Number: RU-ACTELION-A-CH2012-61230

PATIENT
  Age: 16 Year
  Sex: Female

DRUGS (4)
  1. TRACLEER [Suspect]
     Dosage: 62.5 MG, BID
     Route: 048
     Dates: start: 20101201, end: 20110101
  2. DIURETICS [Concomitant]
  3. ACE INHIBITORS [Concomitant]
  4. TRACLEER [Suspect]
     Indication: PULMONARY ARTERIAL HYPERTENSION
     Dosage: 125 MG, BID
     Route: 048
     Dates: start: 20110101, end: 20120215

REACTIONS (3)
  - CARDIAC FAILURE [None]
  - PULMONARY EMBOLISM [None]
  - ARRHYTHMIA [None]
